FAERS Safety Report 19113102 (Version 1)
Quarter: 2021Q2

REPORT INFORMATION
  Report Type: Spontaneous
  Country: DK (occurrence: DK)
  Receive Date: 20210408
  Receipt Date: 20210408
  Transmission Date: 20210717
  Serious: Yes (Life-Threatening)
  Sender: FDA-Public Use
  Company Number: DK-BAYER-2021-119473

PATIENT
  Age: 24 Year
  Sex: Female

DRUGS (1)
  1. KYLEENA [Suspect]
     Active Substance: LEVONORGESTREL
     Indication: CONTRACEPTION
     Dosage: 17.5 ?G PER DAY, CONTINUOUSLY
     Route: 015
     Dates: start: 20200724, end: 20210314

REACTIONS (3)
  - Abdominal pain [Unknown]
  - Vaginal haemorrhage [Unknown]
  - Ectopic pregnancy with contraceptive device [Recovered/Resolved with Sequelae]

NARRATIVE: CASE EVENT DATE: 20210314
